FAERS Safety Report 13194547 (Version 1)
Quarter: 2017Q1

REPORT INFORMATION
  Report Type: Spontaneous
  Country: US (occurrence: US)
  Receive Date: 20170207
  Receipt Date: 20170207
  Transmission Date: 20170428
  Serious: No
  Sender: FDA-Public Use
  Company Number: US-JAZZ-2016-US-006585

PATIENT
  Age: 53 Year
  Sex: Male

DRUGS (4)
  1. DILAUDID [Concomitant]
     Active Substance: HYDROMORPHONE HYDROCHLORIDE
  2. LORAZEPAM. [Concomitant]
     Active Substance: LORAZEPAM
  3. PRIALT [Suspect]
     Active Substance: ZICONOTIDE ACETATE
     Dosage: 0.017 ?G, QH
     Route: 037
  4. FENTANYL. [Concomitant]
     Active Substance: FENTANYL

REACTIONS (3)
  - Hallucination, auditory [Unknown]
  - Hallucination, visual [Unknown]
  - Skin burning sensation [Unknown]
